FAERS Safety Report 5743246-2 (Version None)
Quarter: 2008Q2

REPORT INFORMATION
  Report Type: 
  Country: None (occurrence: None)
  Receive Date: 20080519
  Receipt Date: 20080507
  Transmission Date: 20081010
  Serious: Yes (Death)
  Sender: FDA-Public Use
  Company Number: GB-PFIZER INC-2008040290

PATIENT
  Age: 75 Year
  Sex: Male

DRUGS (2)
  1. VFEND [Suspect]
     Indication: INFECTION
  2. DRUG, UNSPECIFIED [Concomitant]

REACTIONS (2)
  - DISEASE PROGRESSION [None]
  - PHOTOPSIA [None]
